FAERS Safety Report 8625208-0 (Version None)
Quarter: 2012Q3

REPORT INFORMATION
  Report Type: 
  Country: None (occurrence: None)
  Receive Date: 20120827
  Receipt Date: 20120820
  Transmission Date: 20120928
  Serious: Yes (Hospitalization)
  Sender: FDA-Public Use
  Company Number: MX-BAXTER-2012BAX015163

PATIENT
  Sex: Male

DRUGS (2)
  1. DIANEAL SOLUCION PARA DIALISIS PERITONEAL CON DEXTROSA AL 1.5% [Suspect]
     Indication: PERITONEAL DIALYSIS
     Route: 033
  2. DIANEAL [Suspect]
     Indication: PERITONEAL DIALYSIS
     Route: 033

REACTIONS (2)
  - DIALYSIS [None]
  - HYPERTENSIVE CRISIS [None]
